FAERS Safety Report 7023479-8 (Version None)
Quarter: 2010Q3

REPORT INFORMATION
  Report Type: 
  Country: None (occurrence: None)
  Receive Date: 20100929
  Receipt Date: 20100915
  Transmission Date: 20110219
  Serious: Yes (Hospitalization)
  Sender: FDA-Public Use
  Company Number: 018147

PATIENT
  Sex: Female
  Weight: 50 kg

DRUGS (1)
  1. CIMZIA [Suspect]
     Indication: CROHN'S DISEASE
     Dosage: TWO INJECTIONS EVERY 4 WEEKS SUBCUTANEOUS
     Route: 058
     Dates: start: 20100101

REACTIONS (5)
  - EMOTIONAL DISORDER [None]
  - IMPAIRED WORK ABILITY [None]
  - PERIRECTAL ABSCESS [None]
  - RASH [None]
  - STAPHYLOCOCCAL INFECTION [None]
